FAERS Safety Report 7345381-4 (Version None)
Quarter: 2011Q1

REPORT INFORMATION
  Report Type: 
  Country: None (occurrence: None)
  Receive Date: 20110310
  Receipt Date: 20110302
  Transmission Date: 20110831
  Serious: Yes (Hospitalization)
  Sender: FDA-Public Use
  Company Number: PHHO2011US04215

PATIENT
  Sex: Male
  Weight: 111 kg

DRUGS (13)
  1. ATIVAN [Concomitant]
     Indication: PROPHYLAXIS OF NAUSEA AND VOMITING
  2. PRILOSEC [Concomitant]
  3. CLEOCIN T [Concomitant]
     Indication: RASH
  4. PERCOCET [Concomitant]
  5. OXYCODONE HCL [Concomitant]
  6. COMPAZINE [Concomitant]
     Indication: PROPHYLAXIS OF NAUSEA AND VOMITING
  7. OXYCONTIN [Concomitant]
  8. ZOFRAN [Concomitant]
  9. AFINITOR [Suspect]
     Indication: NEOPLASM
  10. DALTEPARIN SODIUM [Concomitant]
  11. FOLIC ACID [Concomitant]
  12. ACETYLSALICYLIC ACID [Concomitant]
  13. DETROL [Concomitant]

REACTIONS (5)
  - JUGULAR VEIN THROMBOSIS [None]
  - TENDERNESS [None]
  - SWELLING [None]
  - NECK PAIN [None]
  - SUBCLAVIAN VEIN THROMBOSIS [None]
